FAERS Safety Report 5559998-0 (Version None)
Quarter: 2007Q4

REPORT INFORMATION
  Report Type: 
  Country: None (occurrence: None)
  Receive Date: 20071214
  Receipt Date: 20071029
  Transmission Date: 20080405
  Serious: No
  Sender: FDA-Public Use
  Company Number: US-ABBOTT-07P-163-0422652-00

PATIENT
  Sex: Female

DRUGS (3)
  1. HUMIRA [Suspect]
     Indication: CROHN'S DISEASE
     Route: 058
     Dates: start: 20071009, end: 20071009
  2. HUMIRA [Suspect]
     Route: 058
     Dates: start: 20071024
  3. HUMIRA [Suspect]
     Route: 058

REACTIONS (3)
  - FATIGUE [None]
  - INFLUENZA LIKE ILLNESS [None]
  - PYREXIA [None]
